FAERS Safety Report 23414405 (Version 1)
Quarter: 2024Q1

REPORT INFORMATION
  Report Type: Spontaneous
  Country: CA (occurrence: CA)
  Receive Date: 20240118
  Receipt Date: 20240118
  Transmission Date: 20240410
  Serious: Yes (Other)
  Sender: FDA-Public Use
  Company Number: CA-DRL-USA-SPO/CAN/24/0000543

PATIENT
  Sex: Female

DRUGS (3)
  1. PROGESTERONE [Suspect]
     Active Substance: PROGESTERONE
     Indication: Product used for unknown indication
  2. PROGESTERONE [Suspect]
     Active Substance: PROGESTERONE
     Route: 030
  3. PROGESTERONE [Suspect]
     Active Substance: PROGESTERONE

REACTIONS (37)
  - Back pain [Unknown]
  - Bursitis [Unknown]
  - Coeliac disease [Unknown]
  - Drug hypersensitivity [Unknown]
  - Drug intolerance [Unknown]
  - Food allergy [Unknown]
  - Hyperhidrosis [Unknown]
  - Hypersensitivity [Unknown]
  - Immunodeficiency [Unknown]
  - Joint swelling [Unknown]
  - Infusion related reaction [Not Recovered/Not Resolved]
  - Rash erythematous [Unknown]
  - Rheumatoid arthritis [Unknown]
  - Temperature regulation disorder [Unknown]
  - Upper respiratory tract infection [Unknown]
  - Thrombocytopenia [Unknown]
  - Psoriasis [Unknown]
  - Pain [Not Recovered/Not Resolved]
  - Asthma [Unknown]
  - Constipation [Unknown]
  - Erythema [Unknown]
  - Fatigue [Unknown]
  - Fluid retention [Unknown]
  - Headache [Unknown]
  - Hepatic enzyme increased [Unknown]
  - Hypertension [Unknown]
  - Pyrexia [Unknown]
  - Rash [Unknown]
  - Treatment failure [Unknown]
  - Exposure during pregnancy [Not Recovered/Not Resolved]
  - Prescribed overdose [Not Recovered/Not Resolved]
  - Drug ineffective [Unknown]
  - Overdose [Not Recovered/Not Resolved]
  - Contraindicated product administered [Unknown]
  - Off label use [Not Recovered/Not Resolved]
  - Intentional product misuse [Not Recovered/Not Resolved]
  - Product use issue [Not Recovered/Not Resolved]
